FAERS Safety Report 13090519 (Version 2)
Quarter: 2017Q1

REPORT INFORMATION
  Report Type: Spontaneous
  Country: US (occurrence: US)
  Receive Date: 20170105
  Receipt Date: 20170206
  Transmission Date: 20170428
  Serious: No
  Sender: FDA-Public Use
  Company Number: US-PFIZER INC-2017000968

PATIENT
  Age: 68 Year
  Sex: Female

DRUGS (1)
  1. CORTISONE [Suspect]
     Active Substance: CORTISONE\HYDROCORTISONE
     Dosage: UNK

REACTIONS (6)
  - Swelling face [Unknown]
  - Drug hypersensitivity [Unknown]
  - Psychomotor hyperactivity [Unknown]
  - Seasonal allergy [Unknown]
  - Palpitations [Unknown]
  - Peripheral swelling [Unknown]
